FAERS Safety Report 20788376 (Version 1)
Quarter: 2022Q2

REPORT INFORMATION
  Report Type: Spontaneous
  Country: BR (occurrence: BR)
  Receive Date: 20220505
  Receipt Date: 20220505
  Transmission Date: 20220721
  Serious: Yes (Death, Life-Threatening, Hospitalization, Other)
  Sender: FDA-Public Use
  Company Number: BR-STRIDES ARCOLAB LIMITED-2022SP004952

PATIENT
  Age: 32 Year
  Sex: Male

DRUGS (8)
  1. DEXAMETHASONE [Suspect]
     Active Substance: DEXAMETHASONE
     Indication: Cutaneous loxoscelism
     Dosage: UNK
     Route: 065
  2. VANCOMYCIN [Suspect]
     Active Substance: VANCOMYCIN
     Indication: Staphylococcal infection
     Dosage: UNK
     Route: 065
  3. ENOXAPARIN [Suspect]
     Active Substance: ENOXAPARIN
     Indication: Cutaneous loxoscelism
     Dosage: UNK
     Route: 065
  4. CLINDAMYCIN [Suspect]
     Active Substance: CLINDAMYCIN
     Indication: Staphylococcal infection
     Dosage: UNK
     Route: 065
  5. CLINDAMYCIN [Suspect]
     Active Substance: CLINDAMYCIN
     Indication: Cutaneous loxoscelism
  6. CEFTRIAXONE [Suspect]
     Active Substance: CEFTRIAXONE
     Indication: Cutaneous loxoscelism
     Dosage: UNK
     Route: 065
  7. AZITHROMYCIN [Suspect]
     Active Substance: AZITHROMYCIN
     Indication: Cutaneous loxoscelism
     Dosage: UNK
     Route: 065
  8. OXYGEN [Suspect]
     Active Substance: OXYGEN
     Indication: Dyspnoea
     Dosage: UNK, (OXYGEN SUPPORT WITH A NASAL CATHETER AT LOW FLOW (1-2 L))
     Route: 045

REACTIONS (10)
  - Cardio-respiratory arrest [Fatal]
  - Drug ineffective [Fatal]
  - Acute kidney injury [Unknown]
  - Pulmonary sepsis [Unknown]
  - Soft tissue infection [Unknown]
  - Sepsis [Unknown]
  - Staphylococcal sepsis [Unknown]
  - Pneumonia [Unknown]
  - COVID-19 pneumonia [Unknown]
  - Off label use [Unknown]
